FAERS Safety Report 5197337-8 (Version None)
Quarter: 2006Q4

REPORT INFORMATION
  Report Type: 
  Country: None (occurrence: None)
  Receive Date: 20060929
  Receipt Date: 20060629
  Transmission Date: 20070319
  Serious: Yes (Hospitalization)
  Sender: FDA-Public Use
  Company Number: 13408943

PATIENT
  Sex: Female
  Weight: 65.76 kg

DRUGS (7)
  1. EMSAM [Suspect]
     Indication: DEPRESSION
     Dosage: 6 MILLIGRAM,24 HOUR
  2. SELEGILINE HCL [Concomitant]
  3. ZYPREXA [Concomitant]
  4. ACYCLOVIR [Concomitant]
  5. FOLIC ACID [Concomitant]
  6. AMBIEN [Concomitant]
  7. ATIVAN [Concomitant]

REACTIONS (2)
  - HYPOTENSION [None]
  - LOSS OF CONSCIOUSNESS [None]
